FAERS Safety Report 25074632 (Version 1)
Quarter: 2025Q1

REPORT INFORMATION
  Report Type: Report from Study
  Country: US (occurrence: US)
  Receive Date: 20250313
  Receipt Date: 20250313
  Transmission Date: 20250408
  Serious: Yes (Other)
  Sender: ROCHE
  Company Number: US-ROCHE-10000225289

PATIENT
  Age: 51 Year
  Sex: Female

DRUGS (1)
  1. XOLAIR [Suspect]
     Active Substance: OMALIZUMAB
     Indication: Idiopathic urticaria
     Route: 058
     Dates: start: 202412, end: 202501

REACTIONS (8)
  - Bone pain [Recovered/Resolved]
  - Pyrexia [Unknown]
  - Headache [Unknown]
  - Dyspnoea [Unknown]
  - Rash [Unknown]
  - Pain [Unknown]
  - Cerebral disorder [Unknown]
  - Myalgia [Recovered/Resolved]

NARRATIVE: CASE EVENT DATE: 20241201
